FAERS Safety Report 9678815 (Version 2)
Quarter: 2013Q4

REPORT INFORMATION
  Report Type: Spontaneous
  Country: US (occurrence: US)
  Receive Date: 20131108
  Receipt Date: 20131125
  Transmission Date: 20140711
  Serious: Yes (Hospitalization)
  Sender: FDA-Public Use
  Company Number: US-GLAXOSMITHKLINE-A1048889A

PATIENT
  Age: 87 Year
  Sex: Female

DRUGS (1)
  1. FLOVENT [Suspect]
     Indication: RESPIRATORY DISORDER
     Dosage: 220MCG UNKNOWN
     Route: 055
     Dates: start: 20100615

REACTIONS (2)
  - Lower limb fracture [Unknown]
  - Hip fracture [Unknown]
